FAERS Safety Report 8024563-2 (Version None)
Quarter: 2011Q4

REPORT INFORMATION
  Report Type: 
  Country: None (occurrence: None)
  Receive Date: 20111130
  Receipt Date: 20110408
  Transmission Date: 20120403
  Serious: Yes (Hospitalization)
  Sender: FDA-Public Use
  Company Number: 326413

PATIENT
  Age: 22 Year
  Sex: Male

DRUGS (1)
  1. NOVOLOG [Suspect]
     Indication: DIABETES MELLITUS
     Dosage: 40 U, QD, SLIDING SCALE, SUBCUTAN.-PUMP ; 42U, OVER 8 HOUR PERIOD, SUBCUTANEOUS
     Route: 058
     Dates: start: 20110407, end: 20110407

REACTIONS (1)
  - HYPERGLYCAEMIA [None]
